FAERS Safety Report 6887662-4 (Version None)
Quarter: 2010Q3

REPORT INFORMATION
  Report Type: 
  Country: None (occurrence: None)
  Receive Date: 20100728
  Receipt Date: 20100719
  Transmission Date: 20110219
  Serious: Yes (Life-Threatening, Hospitalization)
  Sender: FDA-Public Use
  Company Number: DK-001477

PATIENT
  Sex: Male
  Weight: 82 kg

DRUGS (5)
  1. DEGARELIX [Suspect]
     Indication: PROSTATE CANCER
     Dosage: (240 MG SUBCUTANEOUS)
     Route: 058
     Dates: start: 20100128, end: 20100128
  2. SIMVASTATIN [Concomitant]
  3. MAGNESIUM [Concomitant]
  4. NEXIUM /01479303/ [Concomitant]
  5. UNIKALK PLUS [Concomitant]

REACTIONS (3)
  - ANURIA [None]
  - HYDRONEPHROSIS [None]
  - URETERIC OBSTRUCTION [None]
